FAERS Safety Report 5488504-4 (Version None)
Quarter: 2007Q4

REPORT INFORMATION
  Report Type: 
  Country: None (occurrence: None)
  Receive Date: 20071005
  Receipt Date: 20070827
  Transmission Date: 20080405
  Serious: No
  Sender: FDA-Public Use
  Company Number: PHEH2007US11669

PATIENT
  Age: 52 Year
  Sex: Female

DRUGS (3)
  1. TEKTURNA [Suspect]
     Dosage: 150 MG,
  2. METOPROLOL TARTRATE [Concomitant]
  3. XANAX [Concomitant]

REACTIONS (2)
  - HEADACHE [None]
  - HEART RATE INCREASED [None]
